FAERS Safety Report 4958432-9 (Version None)
Quarter: 2006Q1

REPORT INFORMATION
  Report Type: 
  Country: None (occurrence: None)
  Receive Date: 20060201
  Receipt Date: 20051107
  Transmission Date: 20060701
  Serious: No
  Sender: FDA-Public Use
  Company Number: 2005PV003955

PATIENT
  Age: 72 Year
  Sex: Female

DRUGS (4)
  1. BYETTA [Suspect]
     Indication: DIABETES MELLITUS NON-INSULIN-DEPENDENT
     Dosage: 5 MCG, BID, SC
     Route: 058
     Dates: start: 20050927, end: 20050928
  2. HUMULIN N [Concomitant]
  3. HUMULIN 70/30 [Concomitant]
  4. METAMUCIL-2 [Concomitant]

REACTIONS (9)
  - CHOLELITHIASIS [None]
  - CONSTIPATION [None]
  - DIVERTICULITIS [None]
  - DYSPEPSIA [None]
  - GALLBLADDER DISORDER [None]
  - GASTRITIS [None]
  - MUSCLE SPASMS [None]
  - PAIN [None]
  - PAIN IN EXTREMITY [None]
